FAERS Safety Report 22076308 (Version 5)
Quarter: 2025Q1

REPORT INFORMATION
  Report Type: Report from Study
  Country: US (occurrence: US)
  Receive Date: 20230309
  Receipt Date: 20250109
  Transmission Date: 20250409
  Serious: Yes (Hospitalization)
  Sender: PFIZER
  Company Number: US-GBT-020663

PATIENT
  Age: 54 Year
  Sex: Female
  Weight: 71.202 kg

DRUGS (10)
  1. VOXELOTOR [Suspect]
     Active Substance: VOXELOTOR
     Indication: Sickle cell disease
     Dosage: 2500 MG, DAILY
     Route: 048
     Dates: start: 20201102, end: 20220119
  2. FOLIC ACID [Concomitant]
     Active Substance: FOLIC ACID
     Dosage: 1 MG (1 TABLET), DAILY
     Route: 048
     Dates: start: 20211123, end: 20211208
  3. ALBUTEROL SULFATE [Concomitant]
     Active Substance: ALBUTEROL SULFATE
     Indication: Wheezing
     Route: 055
     Dates: start: 20160824
  4. ALBUTEROL SULFATE [Concomitant]
     Active Substance: ALBUTEROL SULFATE
     Indication: Dyspnoea
  5. CAPSAICIN [Concomitant]
     Active Substance: CAPSAICIN
     Indication: Pain
     Dosage: 0.025 %, APPLY TO AREAS OF SEVERE PAIN TWICE PER DAY
     Dates: start: 20211123
  6. VITAMIN D3 [Concomitant]
     Active Substance: CHOLECALCIFEROL
     Dosage: CHOLECALCIFEROL 25 MCG (1,000 UNIT) TABLET TAKE 5 TABLETS (5,000 UNITS TOTAL)
     Route: 048
     Dates: start: 20160713
  7. BUDESONIDE\FORMOTEROL [Concomitant]
     Active Substance: BUDESONIDE\FORMOTEROL
     Dosage: [BUDESONIDE 160]/[FORMOTEROL 4.5] MCG/ACTUATION HFA, INHALE 2 PUFFS BY MOUTH CURRENTLY
     Route: 055
     Dates: start: 20180426
  8. OXBRYTA [Concomitant]
     Active Substance: VOXELOTOR
     Dosage: 2 TABLETS (1,000 MG TOTAL) DAILY.
     Route: 048
     Dates: start: 20210423, end: 20240927
  9. OXYCODONE [Concomitant]
     Active Substance: OXYCODONE
     Indication: Pain
     Route: 048
     Dates: start: 20111208
  10. RIOCIGUAT [Concomitant]
     Active Substance: RIOCIGUAT
     Dosage: 1.5 MG, 3X/DAY
     Route: 048
     Dates: start: 20210407, end: 20221216

REACTIONS (2)
  - Sickle cell anaemia with crisis [Recovered/Resolved]
  - COVID-19 [Recovered/Resolved]

NARRATIVE: CASE EVENT DATE: 20220120
